FAERS Safety Report 5755449-1 (Version None)
Quarter: 2008Q2

REPORT INFORMATION
  Report Type: 
  Country: None (occurrence: None)
  Receive Date: 20080602
  Receipt Date: 20080526
  Transmission Date: 20081010
  Serious: Yes (Hospitalization)
  Sender: FDA-Public Use
  Company Number: GR-AVENTIS-200814870GDDC

PATIENT
  Age: 75 Year
  Sex: Male

DRUGS (4)
  1. INSULIN GLARGINE [Suspect]
     Indication: DIABETES MELLITUS
     Route: 058
     Dates: start: 20080101, end: 20080524
  2. INSULIN GLARGINE [Suspect]
     Route: 058
     Dates: start: 20080525
  3. GLICLAZIDE [Concomitant]
     Indication: DIABETES MELLITUS
     Dosage: DOSE QUANTITY: 1
     Route: 048
     Dates: start: 20080101
  4. UNKNOWN DRUG [Concomitant]

REACTIONS (2)
  - ANURIA [None]
  - HYPERGLYCAEMIA [None]
